FAERS Safety Report 7822854-9 (Version None)
Quarter: 2011Q4

REPORT INFORMATION
  Report Type: 
  Country: None (occurrence: None)
  Receive Date: 20111018
  Receipt Date: 20110815
  Transmission Date: 20120403
  Serious: No
  Sender: FDA-Public Use
  Company Number: US-ASTRAZENECA-2011SE34375

PATIENT
  Age: 54 Year
  Sex: Male

DRUGS (4)
  1. SYMBICORT [Suspect]
     Dosage: TWO PUFFS
     Route: 055
  2. SYMBICORT [Suspect]
     Indication: CHRONIC OBSTRUCTIVE PULMONARY DISEASE
     Dosage: ONE PUFF
     Route: 055
  3. SYMBICORT [Suspect]
     Dosage: TWO PUFFS
     Route: 055
  4. SYMBICORT [Suspect]
     Indication: ASTHMA
     Dosage: ONE PUFF
     Route: 055

REACTIONS (4)
  - ADVERSE EVENT [None]
  - INCORRECT DOSE ADMINISTERED [None]
  - DRUG INEFFECTIVE [None]
  - DRUG DOSE OMISSION [None]
